FAERS Safety Report 4353271-4 (Version None)
Quarter: 2004Q2

REPORT INFORMATION
  Report Type: 
  Country: None (occurrence: None)
  Receive Date: 20040505
  Receipt Date: 20011121
  Transmission Date: 20050107
  Serious: Yes (Life-Threatening, Hospitalization)
  Sender: FDA-Public Use
  Company Number: 11598133

PATIENT
  Age: 41 Year
  Sex: Male

DRUGS (17)
  1. ZERIT [Suspect]
     Indication: ACQUIRED IMMUNODEFICIENCY SYNDROME
     Dosage: ONGOING 01-AUG-1995 TO 01-MAR-1996 AND 01-APR-1998 TO 08-DEC-2000.
     Route: 048
     Dates: start: 19950801, end: 20001208
  2. VIDEX [Suspect]
     Indication: ACQUIRED IMMUNODEFICIENCY SYNDROME
     Dosage: ONGOING 01/SEPT/1993 - 01/AUG/1994; 01/MAR/1996 - 01/OCT/1996; AND 10/JAN/2000 - 08/DEC/2000
     Route: 048
     Dates: start: 19930901, end: 20001208
  3. STOCRIN CAPS [Suspect]
     Indication: ACQUIRED IMMUNODEFICIENCY SYNDROME
     Dosage: THERAPY INTERRUPTED 12/8/00, RESTARTED 3/9/01, INTERRUPTED 7/01, + RESTARTED 7/31/01
     Route: 048
     Dates: start: 20000110
  4. ZIAGEN [Suspect]
     Indication: ACQUIRED IMMUNODEFICIENCY SYNDROME
     Dosage: THERAPY INTERRUPTED FROM 08-DEC-2000 TO 05-JUN-2001
     Route: 048
     Dates: start: 20000124, end: 20010722
  5. COMBIVIR [Suspect]
     Indication: HIV INFECTION
     Route: 048
     Dates: start: 20010213, end: 20010510
  6. KALETRA [Suspect]
     Indication: HIV INFECTION
     Dosage: THERAPY INTERRUPTED 7/01, RESTARED LATE 7/01.
     Dates: start: 20010309
  7. EPIVIR [Suspect]
     Dosage: THERAPY INTERRUPTED FROM 09-JAN-2000 TO 11-MAY-2001
     Route: 048
     Dates: start: 19961001, end: 20010722
  8. AMPRENAVIR [Suspect]
     Indication: HIV INFECTION
     Route: 048
     Dates: start: 20010723
  9. LOPEMIN [Concomitant]
     Route: 048
     Dates: start: 19921101
  10. RETROVIR [Concomitant]
     Dosage: INTERRUPTED 9/1/93 TO 8/1/94, INTERRUPTED 8/1/95 TO 3/1/96, INTERRUPTED 4/1/98 TO 5/11/01
     Route: 048
     Dates: start: 19921101, end: 20010604
  11. CRIXIVAN [Concomitant]
     Route: 048
     Dates: start: 19970501, end: 19980401
  12. VIRACEPT [Concomitant]
     Route: 048
     Dates: start: 19980401, end: 20000109
  13. RECOMBINATE [Concomitant]
     Route: 042
     Dates: start: 19980828
  14. OIF [Concomitant]
     Route: 042
     Dates: start: 20000710, end: 20001208
  15. RITONAVIR [Concomitant]
     Dates: start: 20010105, end: 20010308
  16. SAQUINAVIR MESYLATE [Concomitant]
     Dates: start: 20010105, end: 20010308
  17. SOMATROPIN [Concomitant]
     Dates: start: 20010319, end: 20011112

REACTIONS (8)
  - DIARRHOEA [None]
  - HYPERLACTACIDAEMIA [None]
  - HYPERLIPIDAEMIA [None]
  - LACTIC ACIDOSIS [None]
  - MYALGIA [None]
  - NEUROPATHY PERIPHERAL [None]
  - PANCREATITIS ACUTE [None]
  - RENAL FAILURE ACUTE [None]
